FAERS Safety Report 5084842-8 (Version None)
Quarter: 2006Q3

REPORT INFORMATION
  Report Type: 
  Country: None (occurrence: None)
  Receive Date: 20060816
  Receipt Date: 20060804
  Transmission Date: 20061208
  Serious: Yes (Disabling)
  Sender: FDA-Public Use
  Company Number: S06-FRA-03314-01

PATIENT
  Age: 83 Year
  Sex: Female

DRUGS (3)
  1. CITALOPRAM HYDROBROMIDE [Suspect]
     Dates: end: 20030904
  2. CLONAZEPAM [Suspect]
     Dosage: 5 QD PO
     Route: 048
     Dates: end: 20030904
  3. TIAPRIDAL (TIAPRIDE) [Suspect]
     Dates: end: 20030819

REACTIONS (2)
  - GENERAL PHYSICAL HEALTH DETERIORATION [None]
  - TARDIVE DYSKINESIA [None]
